FAERS Safety Report 7821638-5 (Version None)
Quarter: 2011Q4

REPORT INFORMATION
  Report Type: 
  Country: None (occurrence: None)
  Receive Date: 20111018
  Receipt Date: 20110218
  Transmission Date: 20120403
  Serious: No
  Sender: FDA-Public Use
  Company Number: US-ASTRAZENECA-2011SE09547

PATIENT
  Age: 948 Month
  Sex: Female

DRUGS (7)
  1. MUCINEX [Concomitant]
  2. AMOXICILLIN [Concomitant]
  3. VITAMIN TAB [Concomitant]
  4. IPRATROPIUM BROMIDE [Concomitant]
  5. SYMBICORT [Suspect]
     Indication: CHRONIC OBSTRUCTIVE PULMONARY DISEASE
     Dosage: 160/4.5 MCG TWO PUFFS BID
     Route: 055
     Dates: start: 20101201
  6. ALBUTEROL SULFATE [Concomitant]
  7. LOVASTATIN [Concomitant]

REACTIONS (5)
  - FATIGUE [None]
  - TONGUE ULCERATION [None]
  - EYE DISORDER [None]
  - DYSPNOEA EXERTIONAL [None]
  - NASOPHARYNGITIS [None]
